FAERS Safety Report 13988971 (Version 1)
Quarter: 2017Q3

REPORT INFORMATION
  Report Type: Spontaneous
  Country: US (occurrence: US)
  Receive Date: 20170919
  Receipt Date: 20170919
  Transmission Date: 20171128
  Serious: Yes (Other)
  Sender: FDA-Public Use
  Company Number: None

PATIENT
  Age: 29 Year
  Sex: Female
  Weight: 60.75 kg

DRUGS (3)
  1. VITAMIN D [Concomitant]
     Active Substance: CHOLECALCIFEROL
  2. MULTI VITAMIN [Concomitant]
     Active Substance: VITAMINS
  3. TRI-LO SPRINTEC [Suspect]
     Active Substance: ETHINYL ESTRADIOL\NORGESTIMATE
     Indication: CONTRACEPTION
     Dosage: ?          QUANTITY:1 TABLET(S);?
     Route: 048
     Dates: start: 20170903, end: 20170919

REACTIONS (10)
  - Acne cystic [None]
  - Breast pain [None]
  - Product substitution issue [None]
  - Breast enlargement [None]
  - Libido decreased [None]
  - Emotional disorder [None]
  - Breast tenderness [None]
  - Affective disorder [None]
  - Mental status changes [None]
  - Crying [None]

NARRATIVE: CASE EVENT DATE: 20170903
